FAERS Safety Report 21036038 (Version 1)
Quarter: 2022Q3

REPORT INFORMATION
  Report Type: Spontaneous
  Country: US (occurrence: US)
  Receive Date: 20220701
  Receipt Date: 20220701
  Transmission Date: 20221027
  Serious: No
  Sender: FDA-Public Use
  Company Number: US-KRAMERLABS-2022-US-002188

PATIENT
  Age: 88 Year
  Sex: Female
  Weight: 50.8 kg

DRUGS (7)
  1. NIZORAL A-D [Suspect]
     Active Substance: KETOCONAZOLE
     Indication: Alopecia
     Dosage: USED ONE TIME
     Route: 061
     Dates: start: 20220114, end: 20220114
  2. Dehydroepiandrosterone(DHEA) [Concomitant]
  3. ESTROGENS [Concomitant]
     Active Substance: ESTROGENS
  4. PROGESTERONE [Concomitant]
     Active Substance: PROGESTERONE
  5. VITAMIN B [Concomitant]
     Active Substance: VITAMIN B
  6. NAC medication [Concomitant]
  7. VITAMINS [Concomitant]
     Active Substance: VITAMINS

REACTIONS (6)
  - Condition aggravated [Not Recovered/Not Resolved]
  - Hair texture abnormal [Recovering/Resolving]
  - Skin exfoliation [Recovering/Resolving]
  - Product use in unapproved indication [Recovered/Resolved]
  - Alopecia [Not Recovered/Not Resolved]
  - Intentional product misuse [Recovered/Resolved]

NARRATIVE: CASE EVENT DATE: 20220114
